FAERS Safety Report 10594197 (Version 2)
Quarter: 2015Q1

REPORT INFORMATION
  Report Type: Report from Study
  Country: FI (occurrence: FI)
  Receive Date: 20141119
  Receipt Date: 20150204
  Transmission Date: 20150720
  Serious: Yes (Other)
  Sender: FDA-Public Use
  Company Number: FI-RECKITT BENCKISER PHARMACEUTICAL, INC-RB-73069-2014

PATIENT
  Age: 36 Year
  Sex: Male

DRUGS (8)
  1. SUBOXONE [Suspect]
     Active Substance: BUPRENORPHINE HYDROCHLORIDE\NALOXONE HYDROCHLORIDE
     Indication: DRUG DEPENDENCE
     Dosage: LESS THAN ONCE A WEEK, TAKING FROM PAST 4 YEARS
     Route: 065
  2. SUBUTEX [Suspect]
     Active Substance: BUPRENORPHINE HYDROCHLORIDE
     Indication: DRUG DEPENDENCE
     Dosage: UNK
     Route: 045
  3. ALCOHOL. [Suspect]
     Active Substance: ALCOHOL
     Indication: PRODUCT USED FOR UNKNOWN INDICATION
     Dosage: TAKING FROM PAST 25 YEARS
     Route: 065
  4. SUBOXONE [Suspect]
     Active Substance: BUPRENORPHINE HYDROCHLORIDE\NALOXONE HYDROCHLORIDE
     Indication: EUPHORIC MOOD
  5. CODEINE [Suspect]
     Active Substance: CODEINE
     Indication: DRUG DEPENDENCE
     Dosage: LESS THAN ONCE A WEEK, TAKING FROM PAST 7 YEARS
     Route: 065
  6. METHADONE [Suspect]
     Active Substance: METHADONE HYDROCHLORIDE
     Indication: DRUG DEPENDENCE
     Dosage: LESS THAN ONCE A WEEK, TAKING FROM PAST 2 YEARS
     Route: 065
  7. SUBUTEX [Suspect]
     Active Substance: BUPRENORPHINE HYDROCHLORIDE
     Indication: EUPHORIC MOOD
     Dosage: LESS THAN ONCE A WEEK, TAKING FROM PAST 18 YEARS
     Route: 065
  8. MORPHINE/ OPIUM [Suspect]
     Active Substance: MORPHINE
     Indication: PRODUCT USED FOR UNKNOWN INDICATION
     Dosage: LESS THAN ONCE A WEEK, TAKING FROM PAST 18 YEARS
     Route: 065

REACTIONS (4)
  - Intentional product misuse [Unknown]
  - Substance abuse [Not Recovered/Not Resolved]
  - Drug dependence [Not Recovered/Not Resolved]
  - Hepatitis C [Unknown]
